FAERS Safety Report 24120166 (Version 2)
Quarter: 2024Q3

REPORT INFORMATION
  Report Type: Spontaneous
  Country: FR (occurrence: FR)
  Receive Date: 20240722
  Receipt Date: 20240723
  Transmission Date: 20241016
  Serious: Yes (Hospitalization)
  Sender: PFIZER
  Company Number: None

PATIENT
  Age: 46 Year
  Sex: Male
  Weight: 53 kg

DRUGS (3)
  1. CLINDAMYCIN [Suspect]
     Active Substance: CLINDAMYCIN
     Indication: Osteitis
     Dosage: UNK
     Route: 048
     Dates: start: 20240326, end: 20240413
  2. CIPROFLOXACIN HYDROCHLORIDE [Suspect]
     Active Substance: CIPROFLOXACIN HYDROCHLORIDE
     Indication: Osteitis
     Dosage: UNK
     Route: 048
     Dates: start: 20240326, end: 20240413
  3. METHOTREXATE SODIUM [Suspect]
     Active Substance: METHOTREXATE SODIUM
     Indication: Erythrodermic psoriasis
     Dosage: 15 MG, WEEKLY
     Route: 058
     Dates: start: 20231208, end: 20240413

REACTIONS (2)
  - Gastroenteritis yersinia [Recovered/Resolved]
  - Pancytopenia [Recovered/Resolved]

NARRATIVE: CASE EVENT DATE: 20240413
